FAERS Safety Report 4953886-6 (Version None)
Quarter: 2006Q1

REPORT INFORMATION
  Report Type: 
  Country: None (occurrence: None)
  Receive Date: 20060324
  Receipt Date: 20060324
  Transmission Date: 20060701
  Serious: Yes (Other)
  Sender: FDA-Public Use
  Company Number: None

PATIENT
  Age: 52 Year
  Sex: Female
  Weight: 90.2658 kg

DRUGS (4)
  1. RUBINTUSSIN CF? [Suspect]
     Indication: COUGH
     Dosage: 1 TEASPOON EVERY FOUR HOURS
     Dates: start: 20060303, end: 20060303
  2. RUBINTUSSIN CF? [Suspect]
     Indication: VIRAL INFECTION
     Dosage: 1 TEASPOON EVERY FOUR HOURS
     Dates: start: 20060303, end: 20060303
  3. VICK WILD CHERRY COUGHT DROPS [Suspect]
     Indication: COUGH
     Dosage: AS NEED FOR COUGH
     Dates: start: 20060307, end: 20060307
  4. VICK WILD CHERRY COUGHT DROPS [Suspect]
     Indication: VIRAL INFECTION
     Dosage: AS NEED FOR COUGH
     Dates: start: 20060307, end: 20060307

REACTIONS (3)
  - HYPERSENSITIVITY [None]
  - REACTION TO COLOURING [None]
  - URTICARIA [None]
